FAERS Safety Report 12468178 (Version 2)
Quarter: 2016Q2

REPORT INFORMATION
  Report Type: Spontaneous
  Country: BE (occurrence: BE)
  Receive Date: 20160615
  Receipt Date: 20160621
  Transmission Date: 20160815
  Serious: Yes (Other)
  Sender: FDA-Public Use
  Company Number: PHHY2016BE079830

PATIENT
  Sex: Female

DRUGS (2)
  1. LETROZOLE. [Suspect]
     Active Substance: LETROZOLE
     Indication: ADENOCARCINOMA
     Dosage: UNK
     Route: 065
     Dates: start: 201511
  2. PALBOCICLIB [Suspect]
     Active Substance: PALBOCICLIB
     Indication: ADENOCARCINOMA
     Dosage: UNK
     Route: 065
     Dates: start: 201511

REACTIONS (6)
  - Metastases to pleura [Unknown]
  - Liver function test increased [Unknown]
  - Metastases to liver [Unknown]
  - Ascites [Unknown]
  - Metastases to peritoneum [Unknown]
  - Malignant neoplasm progression [Unknown]

NARRATIVE: CASE EVENT DATE: 201511
